FAERS Safety Report 12365637 (Version 2)
Quarter: 2016Q3

REPORT INFORMATION
  Report Type: Spontaneous
  Country: US (occurrence: US)
  Receive Date: 20160513
  Receipt Date: 20160711
  Transmission Date: 20161109
  Serious: Yes (Hospitalization, Other)
  Sender: FDA-Public Use
  Company Number: US-GLAXOSMITHKLINE-US2016067070

PATIENT
  Age: 66 Year
  Sex: Male

DRUGS (14)
  1. ADVAIR HFA [Suspect]
     Active Substance: FLUTICASONE PROPIONATE\SALMETEROL XINAFOATE
     Indication: CHRONIC OBSTRUCTIVE PULMONARY DISEASE
     Dosage: 1 PUFF(S), BID
     Route: 055
     Dates: start: 20060823, end: 20141106
  2. COMBIVENT [Concomitant]
     Active Substance: ALBUTEROL SULFATE\IPRATROPIUM BROMIDE
  3. OMEPRAZOLE. [Concomitant]
     Active Substance: OMEPRAZOLE
  4. ANASTROZOLE. [Concomitant]
     Active Substance: ANASTROZOLE
  5. MAGNESIUM [Concomitant]
     Active Substance: MAGNESIUM
  6. TESTOSTERONE. [Concomitant]
     Active Substance: TESTOSTERONE
  7. ADVAIR HFA [Suspect]
     Active Substance: FLUTICASONE PROPIONATE\SALMETEROL XINAFOATE
     Indication: BRONCHITIS CHRONIC
  8. FOLIC ACID. [Concomitant]
     Active Substance: FOLIC ACID
  9. TOVIAZ [Concomitant]
     Active Substance: FESOTERODINE FUMARATE
  10. VITAMIN D3 [Concomitant]
     Active Substance: CHOLECALCIFEROL
  11. CALCITONIN NASAL SPRAY [Concomitant]
  12. ADVAIR HFA [Suspect]
     Active Substance: FLUTICASONE PROPIONATE\SALMETEROL XINAFOATE
     Indication: EMPHYSEMA
  13. CALCIUM [Concomitant]
     Active Substance: CALCIUM
  14. FINASTERIDE. [Concomitant]
     Active Substance: FINASTERIDE

REACTIONS (4)
  - Pneumonia [Recovered/Resolved]
  - Off label use [Recovered/Resolved]
  - Osteoporosis [Not Recovered/Not Resolved]
  - Cataract [Not Recovered/Not Resolved]

NARRATIVE: CASE EVENT DATE: 2006
